FAERS Safety Report 16195283 (Version 1)
Quarter: 2019Q2

REPORT INFORMATION
  Report Type: Spontaneous
  Country: US (occurrence: US)
  Receive Date: 20190415
  Receipt Date: 20190415
  Transmission Date: 20190711
  Serious: Yes (Other)
  Sender: FDA-Public Use
  Company Number: US-BRISTOL-MYERS SQUIBB COMPANY-BMS-2019-035154

PATIENT
  Age: 34 Year
  Sex: Female

DRUGS (1)
  1. TRIAMCINOLONE ACETONIDE. [Suspect]
     Active Substance: TRIAMCINOLONE ACETONIDE
     Indication: CHORIORETINITIS
     Dosage: 4 MILLIGRAM

REACTIONS (6)
  - Maternal exposure during pregnancy [Unknown]
  - Prescribed underdose [Unknown]
  - Non-infectious endophthalmitis [Unknown]
  - Product use issue [Unknown]
  - Cataract subcapsular [Unknown]
  - Intraocular pressure increased [Unknown]
